FAERS Safety Report 6952987-0 (Version None)
Quarter: 2010Q3

REPORT INFORMATION
  Report Type: 
  Country: None (occurrence: None)
  Receive Date: 20100829
  Receipt Date: 20100519
  Transmission Date: 20110219
  Serious: No
  Sender: FDA-Public Use
  Company Number: US-ABBOTT-10P-163-0646906-00

PATIENT
  Sex: Female
  Weight: 68.1 kg

DRUGS (8)
  1. NIASPAN [Suspect]
     Indication: BLOOD CHOLESTEROL INCREASED
     Route: 048
     Dates: start: 20091201
  2. PLAVIX [Concomitant]
     Indication: MYOCARDIAL INFARCTION
     Route: 048
  3. ASPIRIN [Concomitant]
     Indication: CARDIAC DISORDER
     Route: 048
  4. RANEXA [Concomitant]
     Indication: ANGINA PECTORIS
     Route: 048
  5. PROTONIX [Concomitant]
     Indication: GASTROOESOPHAGEAL REFLUX DISEASE
     Route: 048
  6. COREG [Concomitant]
     Indication: HYPERTENSION
     Route: 048
  7. ATIVAN [Concomitant]
     Indication: ANXIETY
     Dosage: 1/2 TAB IN AM 1/2 AT BEDTIME
  8. ZOCOR [Concomitant]
     Indication: BLOOD CHOLESTEROL INCREASED
     Route: 048

REACTIONS (6)
  - FEELING HOT [None]
  - FLUSHING [None]
  - PARAESTHESIA [None]
  - PRURITUS [None]
  - RASH [None]
  - WHITE BLOOD CELL COUNT INCREASED [None]
